FAERS Safety Report 5981584-9 (Version None)
Quarter: 2008Q4

REPORT INFORMATION
  Report Type: 
  Country: None (occurrence: None)
  Receive Date: 20081202
  Receipt Date: 20081118
  Transmission Date: 20090506
  Serious: Yes (Death, Hospitalization)
  Sender: FDA-Public Use
  Company Number: KV200800296

PATIENT
  Age: 64 Year
  Sex: Female
  Weight: 36.3 kg

DRUGS (2)
  1. MORPHINE SULFATE [Suspect]
     Indication: PAIN
     Dosage: 15 MG, 1 TAB, BID
     Dates: start: 20080501, end: 20080101
  2. NUMEROUS MEDICATIONS [Concomitant]

REACTIONS (8)
  - ABASIA [None]
  - DELIRIUM [None]
  - DEMENTIA [None]
  - DISEASE PROGRESSION [None]
  - LUNG NEOPLASM MALIGNANT [None]
  - PRODUCT QUALITY ISSUE [None]
  - RESPIRATORY FAILURE [None]
  - SPINAL FRACTURE [None]
